FAERS Safety Report 15339437 (Version 1)
Quarter: 2018Q3

REPORT INFORMATION
  Report Type: Spontaneous
  Country: IT (occurrence: IT)
  Receive Date: 20180831
  Receipt Date: 20180831
  Transmission Date: 20181010
  Serious: Yes (Death)
  Sender: FDA-Public Use
  Company Number: PHHY2018IT084798

PATIENT

DRUGS (2)
  1. IMATINIB [Suspect]
     Active Substance: IMATINIB
     Indication: NEUROBLASTOMA
     Dosage: 170 MG/M2, BID (4 CYCLES)
     Route: 048
  2. IMATINIB [Suspect]
     Active Substance: IMATINIB
     Dosage: 300 MG/M2, BID
     Route: 048

REACTIONS (4)
  - Product use in unapproved indication [Unknown]
  - Myelodysplastic syndrome [Fatal]
  - Acute leukaemia [Fatal]
  - Second primary malignancy [Fatal]
